FAERS Safety Report 26119729 (Version 1)
Quarter: 2025Q4

REPORT INFORMATION
  Report Type: Report from Study
  Country: CA (occurrence: CA)
  Receive Date: 20251204
  Receipt Date: 20251204
  Transmission Date: 20260118
  Serious: Yes (Other)
  Sender: CELLTRION
  Company Number: CA-CELLTRION INC.-2025CA043569

PATIENT

DRUGS (11)
  1. ADALIMUMAB-AATY [Suspect]
     Active Substance: ADALIMUMAB-AATY
     Indication: Psoriatic arthropathy
     Dosage: MAINTENANCE - 40 MG - EVERY 2  WEEKS
     Route: 058
     Dates: start: 20220604, end: 2025
  2. ADALIMUMAB-AATY [Suspect]
     Active Substance: ADALIMUMAB-AATY
  3. METHOTREXATE [Concomitant]
     Active Substance: METHOTREXATE
     Dosage: 20MG WEEKLY OP (JUST STARTED THIS WEEK)
  4. FOLIC ACID [Concomitant]
     Active Substance: FOLIC ACID
     Dosage: OD
  5. INSULIN NOS [Concomitant]
     Active Substance: INSULIN NOS
  6. METFORMIN [Concomitant]
     Active Substance: METFORMIN HYDROCHLORIDE
     Dosage: BID
  7. DILTIAZEM [Concomitant]
     Active Substance: DILTIAZEM
     Dosage: BID
  8. PREGABALIN [Concomitant]
     Active Substance: PREGABALIN
     Dosage: OD
  9. HYDROCHLOROTHIAZIDE\LOSARTAN [Concomitant]
     Active Substance: HYDROCHLOROTHIAZIDE\LOSARTAN
     Dosage: OD
  10. CRESTOR [Concomitant]
     Active Substance: ROSUVASTATIN CALCIUM
     Dosage: OD
  11. ASPIRIN [Concomitant]
     Active Substance: ASPIRIN
     Dosage: OD

REACTIONS (1)
  - Breast cancer [Unknown]
